FAERS Safety Report 8370182-8 (Version None)
Quarter: 2012Q2

REPORT INFORMATION
  Report Type: 
  Country: None (occurrence: None)
  Receive Date: 20120518
  Receipt Date: 20120510
  Transmission Date: 20120825
  Serious: Yes (Hospitalization)
  Sender: FDA-Public Use
  Company Number: US-BRISTOL-MYERS SQUIBB COMPANY-16584419

PATIENT
  Age: 78 Year
  Sex: Female

DRUGS (14)
  1. DIOVAN [Concomitant]
  2. NYSTATIN [Concomitant]
  3. ANCEF [Concomitant]
  4. ATIVAN [Concomitant]
  5. TOPROL-XL [Concomitant]
  6. LISINOPRIL [Concomitant]
  7. LASIX [Concomitant]
  8. ONDANSETRON [Concomitant]
  9. PROTONIX [Concomitant]
  10. PREDNISOLONE [Concomitant]
  11. VITAMIN D [Concomitant]
  12. LORTAB [Concomitant]
  13. TYLENOL (CAPLET) [Concomitant]
  14. YERVOY [Suspect]
     Dosage: NO OF DOSES : 3
     Dates: start: 20120101, end: 20120101

REACTIONS (2)
  - DIARRHOEA [None]
  - LOWER LIMB FRACTURE [None]
